FAERS Safety Report 23734079 (Version 3)
Quarter: 2024Q4

REPORT INFORMATION
  Report Type: Spontaneous
  Country: US (occurrence: US)
  Receive Date: 20240412
  Receipt Date: 20241224
  Transmission Date: 20250114
  Serious: No
  Sender: AMGEN
  Company Number: US-AMGEN-USASP2024072115

PATIENT
  Age: 54 Year
  Sex: Female

DRUGS (14)
  1. OTEZLA [Suspect]
     Active Substance: APREMILAST
     Indication: Psoriasis
     Dosage: UNK
     Route: 065
  2. OTEZLA [Suspect]
     Active Substance: APREMILAST
     Indication: Psoriatic arthropathy
  3. HYDROCORTISONE [Concomitant]
     Active Substance: HYDROCORTISONE
     Indication: Psoriatic arthropathy
     Dosage: UNK
  4. HYDROCORTISONE [Concomitant]
     Active Substance: HYDROCORTISONE
     Indication: Psoriasis
  5. CLOBETASOL [Concomitant]
     Active Substance: CLOBETASOL
     Indication: Psoriasis
     Dosage: UNK
  6. CLOBETASOL [Concomitant]
     Active Substance: CLOBETASOL
     Indication: Psoriatic arthropathy
  7. DESONIDE [Concomitant]
     Active Substance: DESONIDE
     Indication: Psoriatic arthropathy
     Dosage: UNK
  8. DESONIDE [Concomitant]
     Active Substance: DESONIDE
     Indication: Psoriasis
  9. TACROLIMUS [Concomitant]
     Active Substance: TACROLIMUS
     Indication: Psoriasis
     Dosage: UNK
  10. TACROLIMUS [Concomitant]
     Active Substance: TACROLIMUS
     Indication: Psoriatic arthropathy
  11. SOTYKTU [Concomitant]
     Active Substance: DEUCRAVACITINIB
     Indication: Psoriatic arthropathy
     Dosage: UNK
  12. SOTYKTU [Concomitant]
     Active Substance: DEUCRAVACITINIB
     Indication: Psoriasis
  13. SKYRIZI [Concomitant]
     Active Substance: RISANKIZUMAB-RZAA
     Indication: Psoriasis
     Dosage: UNK
  14. SKYRIZI [Concomitant]
     Active Substance: RISANKIZUMAB-RZAA
     Indication: Psoriatic arthropathy

REACTIONS (2)
  - Therapeutic product effect incomplete [Unknown]
  - Psoriasis [Not Recovered/Not Resolved]
